FAERS Safety Report 17157267 (Version 1)
Quarter: 2019Q4

REPORT INFORMATION
  Report Type: Report from Study
  Country: IT (occurrence: IT)
  Receive Date: 20191216
  Receipt Date: 20191216
  Transmission Date: 20200122
  Serious: Yes (Hospitalization)
  Sender: FDA-Public Use
  Company Number: IT-ACCORD-165540

PATIENT
  Age: 65 Year
  Sex: Male

DRUGS (16)
  1. DOXORUBICIN [Suspect]
     Active Substance: DOXORUBICIN
     Indication: LYMPHOMA
     Route: 042
     Dates: start: 20190903
  2. CYCLOPHOSPHAMIDE/CYCLOPHOSPHAMIDE MONOHYDRATE [Suspect]
     Active Substance: CYCLOPHOSPHAMIDE
     Indication: LYMPHOMA
     Route: 042
     Dates: start: 20190903
  3. ACICLOVIR [Concomitant]
     Active Substance: ACYCLOVIR
  4. VINCRISTINE [Suspect]
     Active Substance: VINCRISTINE
     Indication: LYMPHOMA
     Route: 042
     Dates: start: 20190903
  5. METHYLPREDNISOLONE. [Concomitant]
     Active Substance: METHYLPREDNISOLONE
  6. MYCOSTATIN [Concomitant]
     Active Substance: NYSTATIN
     Dosage: (100,000 U.I./ML)
  7. RITUXIMAB. [Suspect]
     Active Substance: RITUXIMAB
     Indication: LYMPHOMA
     Route: 042
     Dates: start: 20190910
  8. HYDROCORTISONE. [Concomitant]
     Active Substance: HYDROCORTISONE
  9. BACTRIM [Concomitant]
     Active Substance: SULFAMETHOXAZOLE\TRIMETHOPRIM
     Dosage: (160 MG + 800 MG )
  10. TROPISETRON [Concomitant]
     Active Substance: TROPISETRON
  11. GRANISETRON [Concomitant]
     Active Substance: GRANISETRON
  12. CHLORPHENAMINE [Concomitant]
     Active Substance: CHLORPHENIRAMINE MALEATE
  13. CARDIOASPIRIN [Concomitant]
     Active Substance: ASPIRIN
     Dosage: STRENGTH 100 MG
  14. ZEFFIX [Concomitant]
     Active Substance: LAMIVUDINE
     Dosage: (STRENGTH-100 MG)
  15. PARACETAMOL [Concomitant]
     Active Substance: ACETAMINOPHEN
  16. METHOTREXATE. [Suspect]
     Active Substance: METHOTREXATE
     Indication: LYMPHOMA
     Route: 042
     Dates: start: 20190924

REACTIONS (3)
  - Facial paresis [Recovering/Resolving]
  - Speech disorder [Recovering/Resolving]
  - Cerebral ischaemia [Recovering/Resolving]

NARRATIVE: CASE EVENT DATE: 20191028
